FAERS Safety Report 9950577 (Version 1)
Quarter: 2014Q1

REPORT INFORMATION
  Report Type: Spontaneous
  Country: DE (occurrence: DE)
  Receive Date: 20140304
  Receipt Date: 20140304
  Transmission Date: 20141002
  Serious: Yes (Other)
  Sender: FDA-Public Use
  Company Number: PHHY2014DE025266

PATIENT
  Sex: Female

DRUGS (7)
  1. EXELON PATCH [Suspect]
     Dosage: 4.6 MG/24 HOURS
     Route: 062
  2. EXELON PATCH [Suspect]
     Dosage: 9.5 MG/24 HOURS
     Route: 062
  3. INSIDON [Suspect]
     Dosage: 50 MG, UNK
  4. TAVOR (LORAZEPAM) [Concomitant]
     Dosage: UNK UKN, UNK
  5. CIPRALEX//ESCITALOPRAM [Concomitant]
     Dosage: UNK UKN, UNK
  6. VALORON//TILIDINE HYDROCHLORIDE [Concomitant]
     Dosage: UNK UKN, UNK
  7. STANGYL [Concomitant]
     Dosage: UNK UKN, UNK

REACTIONS (10)
  - Paralysis [Unknown]
  - Dementia [Unknown]
  - Hypertension [Unknown]
  - Arrhythmia [Unknown]
  - Dysphagia [Unknown]
  - Dysarthria [Unknown]
  - Histrionic personality disorder [Unknown]
  - General physical health deterioration [Unknown]
  - Mental disorder [Unknown]
  - Depression [Unknown]
